FAERS Safety Report 18968786 (Version 4)
Quarter: 2021Q2

REPORT INFORMATION
  Report Type: Spontaneous
  Country: US (occurrence: US)
  Receive Date: 20210304
  Receipt Date: 20210625
  Transmission Date: 20210717
  Serious: No
  Sender: FDA-Public Use
  Company Number: US-SA-2021SA072665

PATIENT
  Age: 85 Year
  Sex: Female

DRUGS (2)
  1. DUPIXENT [Suspect]
     Active Substance: DUPILUMAB
     Indication: PRODUCT USED FOR UNKNOWN INDICATION
     Dosage: 300 MG, Q15D
     Route: 058
     Dates: start: 2021
  2. DUPIXENT [Suspect]
     Active Substance: DUPILUMAB
     Indication: DERMATITIS ATOPIC
     Dosage: 600 MG, 1X
     Route: 058
     Dates: start: 202101, end: 202101

REACTIONS (6)
  - Dizziness [Unknown]
  - Headache [Recovering/Resolving]
  - Nausea [Unknown]
  - Drug hypersensitivity [Unknown]
  - Dehydration [Unknown]
  - Eye pain [Unknown]

NARRATIVE: CASE EVENT DATE: 2021
